FAERS Safety Report 4888623-7 (Version None)
Quarter: 2005Q4

REPORT INFORMATION
  Report Type: 
  Country: None (occurrence: None)
  Receive Date: 20051215
  Receipt Date: 20050608
  Transmission Date: 20060501
  Serious: Yes (Hospitalization)
  Sender: FDA-Public Use
  Company Number: 2005018055

PATIENT
  Age: 68 Year
  Sex: Female
  Weight: 108.8633 kg

DRUGS (5)
  1. BEXTRA [Suspect]
     Indication: ARTHRALGIA
     Dosage: (10 MG), ORAL
     Route: 048
  2. CELEBREX [Suspect]
     Indication: ILL-DEFINED DISORDER
     Dosage: ORAL
     Route: 048
     Dates: end: 20000101
  3. VIOXX [Suspect]
     Indication: ILL-DEFINED DISORDER
  4. GLYBURIDE [Concomitant]
  5. DETROL LA [Concomitant]

REACTIONS (4)
  - PNEUMONIA [None]
  - RENAL IMPAIRMENT [None]
  - TREMOR [None]
  - UNEVALUABLE EVENT [None]
